FAERS Safety Report 19073447 (Version 1)
Quarter: 2021Q1

REPORT INFORMATION
  Report Type: Spontaneous
  Country: US (occurrence: US)
  Receive Date: 20210330
  Receipt Date: 20210330
  Transmission Date: 20210420
  Serious: No
  Sender: FDA-Public Use
  Company Number: None

PATIENT
  Age: 81 Year
  Sex: Female

DRUGS (2)
  1. ZILRETTA [Suspect]
     Active Substance: TRIAMCINOLONE ACETONIDE
     Indication: JOINT INJURY
     Dosage: ?          QUANTITY:1 INJECTION(S);OTHER FREQUENCY:AT ONCE;OTHER ROUTE:INJECTED INTO KNEE?
     Dates: start: 20210104, end: 20210104
  2. GENERIC CORTISONE INJECTIONS [Concomitant]

REACTIONS (1)
  - Pain [None]

NARRATIVE: CASE EVENT DATE: 20210104
